FAERS Safety Report 24047168 (Version 6)
Quarter: 2025Q1

REPORT INFORMATION
  Report Type: Report from Study
  Country: US (occurrence: US)
  Receive Date: 20240703
  Receipt Date: 20250310
  Transmission Date: 20250409
  Serious: Yes (Hospitalization, Other)
  Sender: UCB
  Company Number: US-UCBSA-2024025222

PATIENT
  Sex: Male
  Weight: 35.4 kg

DRUGS (27)
  1. FINTEPLA [Suspect]
     Active Substance: FENFLURAMINE
     Indication: Lennox-Gastaut syndrome
     Dosage: 5.3 MILLILITER, 2X/DAY (BID)
     Dates: start: 20240207
  2. FINTEPLA [Suspect]
     Active Substance: FENFLURAMINE
     Indication: Seizure
     Dosage: 5.3 MILLILITER, 2X/DAY (BID)
     Dates: start: 2024
  3. FINTEPLA [Suspect]
     Active Substance: FENFLURAMINE
     Dates: start: 20240618
  4. DEPAKOTE [Concomitant]
     Active Substance: DIVALPROEX SODIUM
     Indication: Tonic convulsion
     Dates: start: 20190312
  5. DEPAKOTE [Concomitant]
     Active Substance: DIVALPROEX SODIUM
     Dosage: 500 MILLIGRAM, 2X/DAY (BID)
  6. DEPAKOTE [Concomitant]
     Active Substance: DIVALPROEX SODIUM
     Dosage: 1000 MILLIGRAM, 2X/DAY (BID)
     Dates: end: 20250113
  7. ONFI [Concomitant]
     Active Substance: CLOBAZAM
     Indication: Tonic convulsion
     Dosage: 10 MILLIGRAM, 2X/DAY (BID)
     Dates: start: 20140224
  8. ONFI [Concomitant]
     Active Substance: CLOBAZAM
     Dates: end: 20240925
  9. EPIDIOLEX [Concomitant]
     Active Substance: CANNABIDIOL
     Indication: Tonic convulsion
     Dosage: 300 MILLIGRAM, 2X/DAY (BID)
     Dates: start: 20220304
  10. VALTOCO [Concomitant]
     Active Substance: DIAZEPAM
     Indication: Seizure
     Route: 045
     Dates: start: 20221017
  11. TYLENOL [Concomitant]
     Active Substance: ACETAMINOPHEN
     Indication: Pain
  12. TYLENOL [Concomitant]
     Active Substance: ACETAMINOPHEN
     Indication: Pyrexia
  13. ALBUTEROL SULFATE [Concomitant]
     Active Substance: ALBUTEROL SULFATE
     Indication: Wheezing
     Dates: start: 20231004, end: 20241003
  14. VALISONE [BETAMETHASONE DIPROPIONATE] [Concomitant]
     Indication: Product used for unknown indication
     Dosage: UNK, 2X/DAY (BID)
     Route: 061
     Dates: start: 20240815
  15. CALCIUM CARBONATE [Concomitant]
     Active Substance: CALCIUM CARBONATE
     Indication: Product used for unknown indication
     Route: 048
     Dates: start: 20171202, end: 20240924
  16. FAMOTIDINE [Concomitant]
     Active Substance: FAMOTIDINE
     Indication: Product used for unknown indication
     Dosage: 10 MILLIGRAM, 2X/DAY (BID)
     Dates: start: 20200121
  17. FAMOTIDINE [Concomitant]
     Active Substance: FAMOTIDINE
     Dosage: 20 MILLIGRAM, 2X/DAY (BID)
     Dates: end: 20240925
  18. FLOVENT HFA [Concomitant]
     Active Substance: FLUTICASONE PROPIONATE
     Indication: Product used for unknown indication
     Dates: start: 20240324, end: 20241021
  19. GLYCOPYRROLATE [Concomitant]
     Active Substance: GLYCOPYRROLATE
     Indication: Product used for unknown indication
     Dates: start: 20240108, end: 20241202
  20. MOTRIN [Concomitant]
     Active Substance: IBUPROFEN
     Indication: Pain
     Dates: start: 20240621
  21. CARNITOR [Concomitant]
     Active Substance: LEVOCARNITINE
     Indication: Product used for unknown indication
     Route: 048
  22. CARNITOR [Concomitant]
     Active Substance: LEVOCARNITINE
     Dosage: 500 MILLIGRAM, 2X/DAY (BID)
  23. SINGULAIR [Concomitant]
     Active Substance: MONTELUKAST SODIUM
     Indication: Product used for unknown indication
     Dosage: 5 MILLIGRAM, ONCE DAILY (QD)
     Route: 048
     Dates: start: 20240429, end: 20240925
  24. KETOVIE 4:1 [Concomitant]
     Indication: Product used for unknown indication
     Dosage: 1275 MILLILITER, ONCE DAILY (QD)
     Dates: start: 20220825
  25. ZOFRAN [Concomitant]
     Active Substance: ONDANSETRON HYDROCHLORIDE
     Indication: Nausea
     Dates: start: 20200614
  26. MIRALAX [Concomitant]
     Active Substance: POLYETHYLENE GLYCOL 3350
     Indication: Constipation
  27. SODIUM BICARBONATE [Concomitant]
     Active Substance: SODIUM BICARBONATE
     Indication: Product used for unknown indication
     Route: 048

REACTIONS (8)
  - Pneumonia [Recovering/Resolving]
  - Tricuspid valve incompetence [Not Recovered/Not Resolved]
  - Mitral valve incompetence [Not Recovered/Not Resolved]
  - Seizure [Unknown]
  - Tonic convulsion [Unknown]
  - Upper respiratory tract infection [Unknown]
  - Blood pressure systolic increased [Unknown]
  - Dilatation of sinotubular junction [Not Recovered/Not Resolved]

NARRATIVE: CASE EVENT DATE: 20240101
